FAERS Safety Report 9155136 (Version 1)
Quarter: 2013Q1

REPORT INFORMATION
  Report Type: Spontaneous
  Country: GB (occurrence: None)
  Receive Date: 20130205
  Receipt Date: 20130205
  Transmission Date: 20140127
  Serious: Yes (Other)
  Sender: FDA-Public Use
  Company Number: 2013-01755

PATIENT
  Age: 18 Year
  Sex: Female
  Weight: 63 kg

DRUGS (2)
  1. TRAMADOL [Suspect]
     Indication: NECK PAIN
     Route: 048
     Dates: start: 20130111, end: 20130112
  2. MICROGYNON /00022701/ (ETHINYLESTRADIOL, LEVONORGESTREL) [Concomitant]

REACTIONS (5)
  - Syncope [None]
  - Dizziness [None]
  - Nausea [None]
  - Vomiting [None]
  - Sweat gland disorder [None]
